FAERS Safety Report 25033979 (Version 1)
Quarter: 2025Q1

REPORT INFORMATION
  Report Type: Spontaneous
  Country: CO (occurrence: CO)
  Receive Date: 20250303
  Receipt Date: 20250303
  Transmission Date: 20250408
  Serious: Yes (Hospitalization, Other)
  Sender: Haleon PLC
  Company Number: CO-002147023-NVSC2024CO222381

PATIENT
  Age: 24 Year
  Sex: Male

DRUGS (2)
  1. DICLOFENAC [Suspect]
     Active Substance: DICLOFENAC
     Indication: Abdominal pain
     Dosage: (APPROXIMATE DAILY DOSE OF 300-400MG)
     Route: 065
  2. BUTYLSCOPOLAMINE BROMIDE [Suspect]
     Active Substance: BUTYLSCOPOLAMINE BROMIDE
     Indication: Abdominal pain
     Route: 065

REACTIONS (5)
  - Acute kidney injury [Recovering/Resolving]
  - Tubulointerstitial nephritis [Recovering/Resolving]
  - Intentional product misuse [Unknown]
  - Drug ineffective [Unknown]
  - Overdose [Recovering/Resolving]
